FAERS Safety Report 4563052-4 (Version None)
Quarter: 2005Q1

REPORT INFORMATION
  Report Type: 
  Country: None (occurrence: None)
  Receive Date: 20050125
  Receipt Date: 20040913
  Transmission Date: 20050727
  Serious: No
  Sender: FDA-Public Use
  Company Number: 8858

PATIENT
  Age: 52 Year
  Sex: Male

DRUGS (1)
  1. CYTARABINE [Suspect]
     Indication: CHRONIC MYELOID LEUKAEMIA
     Dosage: IT
     Route: 037

REACTIONS (1)
  - BONE MARROW DEPRESSION [None]
